FAERS Safety Report 8845537 (Version 1)
Quarter: 2012Q4

REPORT INFORMATION
  Report Type: 
  Country: US (occurrence: US)
  Receive Date: 20121017
  Receipt Date: 20121017
  Transmission Date: 20130627
  Serious: No
  Sender: FDA-Public Use
  Company Number: US-B.I. PHARMACEUTICALS,INC./RIDGEFIELD-2012-BP-25633BP

PATIENT
  Sex: Male

DRUGS (7)
  1. ATENOLOL [Concomitant]
     Indication: BLOOD PRESSURE
     Dosage: 25 mg
     Route: 048
  2. FINASTERIDE [Concomitant]
     Indication: BENIGN PROSTATIC HYPERPLASIA
     Dosage: 5 mg
     Route: 048
  3. HCTZ [Concomitant]
  4. GLIMEPIRIDE [Concomitant]
     Indication: DIABETES MELLITUS
     Dosage: 4 mg
     Route: 048
  5. LISINOPRIL [Concomitant]
     Indication: BLOOD PRESSURE
     Dosage: 20 mg
     Route: 048
  6. BACTRIM [Concomitant]
     Dosage: 400 mg
     Route: 048
  7. TRADJENTA [Suspect]
     Indication: DIABETES MELLITUS
     Dosage: 5 mg
     Route: 048
     Dates: start: 201209

REACTIONS (1)
  - Arthralgia [Not Recovered/Not Resolved]
